FAERS Safety Report 23946025 (Version 1)
Quarter: 2024Q2

REPORT INFORMATION
  Report Type: Report from Study
  Country: CA (occurrence: CA)
  Receive Date: 20240606
  Receipt Date: 20240606
  Transmission Date: 20240716
  Serious: Yes (Life-Threatening, Hospitalization, Other)
  Sender: FDA-Public Use
  Company Number: CA-Amarin Pharma  Inc-2024AMR000255

PATIENT
  Age: 59 Year
  Sex: Male

DRUGS (1)
  1. VASCEPA [Suspect]
     Active Substance: ICOSAPENT ETHYL
     Indication: Cardiovascular disorder
     Dates: end: 202402

REACTIONS (4)
  - Myocardial infarction [Recovered/Resolved]
  - Loss of consciousness [Recovered/Resolved]
  - Pneumonia [Unknown]
  - Stent placement [Unknown]

NARRATIVE: CASE EVENT DATE: 20240101
